FAERS Safety Report 12809909 (Version 1)
Quarter: 2016Q4

REPORT INFORMATION
  Report Type: Spontaneous
  Country: US (occurrence: US)
  Receive Date: 20161005
  Receipt Date: 20161005
  Transmission Date: 20170207
  Serious: No
  Sender: FDA-Public Use
  Company Number: US-BEH-2016073941

PATIENT
  Sex: Female
  Weight: 20.4 kg

DRUGS (11)
  1. CHILDREN^S MULTIVITAMIN W/IRON [Concomitant]
     Route: 065
  2. CHILDRENS TYLENOL [Concomitant]
     Active Substance: ACETAMINOPHEN
     Route: 065
  3. DIPHENHYDRAMINE. [Concomitant]
     Active Substance: DIPHENHYDRAMINE
     Route: 065
  4. PRILOCAINE [Concomitant]
     Active Substance: PRILOCAINE
     Route: 065
  5. EPIPEN JR [Concomitant]
     Active Substance: EPINEPHRINE
     Route: 065
  6. CEFDINIR. [Concomitant]
     Active Substance: CEFDINIR
     Route: 065
  7. CHILDRENS ADVIL [Concomitant]
     Active Substance: IBUPROFEN
     Route: 065
  8. SINGULAIR [Concomitant]
     Active Substance: MONTELUKAST SODIUM
     Route: 065
  9. HIZENTRA [Suspect]
     Active Substance: HUMAN IMMUNOGLOBULIN G
     Indication: HYPOGAMMAGLOBULINAEMIA
     Dosage: 2 G, QW
     Route: 058
     Dates: start: 20160112
  10. LIDOCAINE. [Concomitant]
     Active Substance: LIDOCAINE
     Route: 065
  11. XOPENEX [Concomitant]
     Active Substance: LEVALBUTEROL HYDROCHLORIDE
     Route: 065

REACTIONS (1)
  - Urticaria [Unknown]
